FAERS Safety Report 25823693 (Version 3)
Quarter: 2025Q4

REPORT INFORMATION
  Report Type: Report from Study
  Country: US (occurrence: US)
  Receive Date: 20250919
  Receipt Date: 20251118
  Transmission Date: 20260118
  Serious: Yes (Other)
  Sender: ACADIA PHARMACEUTICALS
  Company Number: US-ACADIA PHARMACEUTICALS INC.-ACA-2025-PIM-010404

PATIENT
  Sex: Male

DRUGS (16)
  1. NUPLAZID [Suspect]
     Active Substance: PIMAVANSERIN TARTRATE
     Indication: Parkinson^s disease psychosis
     Dosage: 34 MILLIGRAM, QD
     Route: 048
     Dates: start: 20250918
  2. ASPIRIN [Concomitant]
     Active Substance: ASPIRIN
     Dosage: UNK
  3. ATORVASTATIN [Concomitant]
     Active Substance: ATORVASTATIN
  4. CARBIDOPA\LEVODOPA [Concomitant]
     Active Substance: CARBIDOPA\LEVODOPA
  5. CETIRIZINE [Concomitant]
     Active Substance: CETIRIZINE HYDROCHLORIDE
  6. COENZYME Q10 [Concomitant]
     Active Substance: DIETARY SUPPLEMENT\UBIDECARENONE
  7. DONEPEZIL [Concomitant]
     Active Substance: DONEPEZIL
  8. ESCITALOPRAM [Concomitant]
     Active Substance: ESCITALOPRAM OXALATE
  9. FLUOCINONIDE [Concomitant]
     Active Substance: FLUOCINONIDE
  10. OMEGA-3 FATTY ACIDS [Concomitant]
     Active Substance: OMEGA-3 FATTY ACIDS
  11. POLYETHYLENE GLYCOLS [Concomitant]
     Active Substance: POLYETHYLENE GLYCOLS
  12. RASAGILINE [Concomitant]
     Active Substance: RASAGILINE
  13. SENNOSIDES [Concomitant]
     Active Substance: SENNOSIDES
  14. SILDENAFIL CITRATE [Concomitant]
     Active Substance: SILDENAFIL CITRATE
  15. TADALAFIL [Concomitant]
     Active Substance: TADALAFIL
  16. TRAVOPROST [Concomitant]
     Active Substance: TRAVOPROST

REACTIONS (4)
  - Hallucination [Unknown]
  - Taste disorder [Unknown]
  - Product taste abnormal [Unknown]
  - Drug ineffective [Unknown]
